FAERS Safety Report 13144376 (Version 2)
Quarter: 2017Q1

REPORT INFORMATION
  Report Type: Spontaneous
  Country: JP (occurrence: JP)
  Receive Date: 20170124
  Receipt Date: 20170214
  Transmission Date: 20170428
  Serious: Yes (Other)
  Sender: FDA-Public Use
  Company Number: JP-UCBSA-2017001700

PATIENT
  Age: 33 Year
  Sex: Female

DRUGS (3)
  1. MUCOSTA [Concomitant]
     Active Substance: REBAMIPIDE
     Indication: PRODUCT USED FOR UNKNOWN INDICATION
     Dosage: 100 MG DAILY
     Route: 048
     Dates: start: 20160714
  2. LOXONIN [Concomitant]
     Active Substance: LOXOPROFEN SODIUM
     Indication: PRODUCT USED FOR UNKNOWN INDICATION
     Dosage: 180 MG DAILY
     Route: 048
     Dates: start: 20160714
  3. CIMZIA [Suspect]
     Active Substance: CERTOLIZUMAB PEGOL
     Indication: RHEUMATOID ARTHRITIS
     Dosage: 200 MG, EV 2 WEEKS(QOW)
     Route: 058
     Dates: start: 20160714, end: 2016

REACTIONS (3)
  - Herpes zoster [Recovered/Resolved]
  - Blister [Recovered/Resolved]
  - Internal haemorrhage [Recovered/Resolved]

NARRATIVE: CASE EVENT DATE: 20161027
